FAERS Safety Report 5091701-3 (Version None)
Quarter: 2006Q3

REPORT INFORMATION
  Report Type: 
  Country: None (occurrence: None)
  Receive Date: 20060829
  Receipt Date: 20060705
  Transmission Date: 20061208
  Serious: Yes (Disabling, Other)
  Sender: FDA-Public Use
  Company Number: US-BRISTOL-MYERS SQUIBB COMPANY-13439898

PATIENT
  Sex: Male

DRUGS (2)
  1. KENALOG-40 [Suspect]
     Indication: MACULAR OEDEMA
     Route: 031
     Dates: start: 20060628
  2. KENALOG-40 [Suspect]
     Indication: RETINAL VEIN OCCLUSION
     Route: 031
     Dates: start: 20060628

REACTIONS (2)
  - HYPERSENSITIVITY [None]
  - VISUAL DISTURBANCE [None]
